FAERS Safety Report 5206170-X (Version None)
Quarter: 2006Q4

REPORT INFORMATION
  Report Type: 
  Country: None (occurrence: None)
  Receive Date: 20061026
  Receipt Date: 20060914
  Transmission Date: 20070319
  Serious: No
  Sender: FDA-Public Use
  Company Number: 2006113581

PATIENT
  Age: 58 Year
  Sex: Female
  Weight: 78.0187 kg

DRUGS (5)
  1. LYRICA [Suspect]
     Indication: NEURALGIA
     Dosage: 50 MG (50 MG, 1 IN 1 D)
     Dates: start: 20060911, end: 20060912
  2. PEPTO-BISMOL (BISMUTH SUBSALICYLATE) [Suspect]
  3. HYZAAR [Concomitant]
  4. NEXIUM [Concomitant]
  5. ZOCOR [Concomitant]

REACTIONS (5)
  - ABDOMINAL PAIN UPPER [None]
  - ANORECTAL DISORDER [None]
  - ASTHENIA [None]
  - DIARRHOEA [None]
  - FAECES DISCOLOURED [None]
